FAERS Safety Report 9729712 (Version 1)
Quarter: 2013Q4

REPORT INFORMATION
  Report Type: Spontaneous
  Country: US (occurrence: US)
  Receive Date: 20131204
  Receipt Date: 20131204
  Transmission Date: 20140711
  Serious: No
  Sender: FDA-Public Use
  Company Number: US-GILEAD-2009-0021750

PATIENT
  Age: 53 Year
  Sex: Male
  Weight: 105.23 kg

DRUGS (10)
  1. LETAIRIS [Suspect]
     Indication: PULMONARY ARTERIAL HYPERTENSION
     Route: 048
     Dates: start: 20090429
  2. COUMADIN [Concomitant]
  3. LISINOPRIL [Concomitant]
  4. TRIAMTERENE [Concomitant]
  5. LOVASTATIN [Concomitant]
  6. GLIPIZIDE [Concomitant]
  7. GLUCOPHAGE [Concomitant]
  8. METOCLOPRAMIDE [Concomitant]
  9. PREVACID [Concomitant]
  10. LORAZEPAM [Concomitant]

REACTIONS (1)
  - Hypotension [Unknown]
